FAERS Safety Report 8403212 (Version 2)
Quarter: 2016Q4

REPORT INFORMATION
  Report Type: Report from Study
  Country: CN (occurrence: CN)
  Receive Date: 20120213
  Receipt Date: 20161214
  Transmission Date: 20170207
  Serious: Yes (Hospitalization)
  Sender: FDA-Public Use
  Company Number: CN-ROCHE-786320

PATIENT
  Age: 60 Year
  Sex: Female
  Weight: 65 kg

DRUGS (5)
  1. RITUXIMAB [Suspect]
     Active Substance: RITUXIMAB
     Indication: DIFFUSE LARGE B-CELL LYMPHOMA
     Route: 042
     Dates: start: 20110326, end: 20110619
  2. VINDESINE [Concomitant]
     Active Substance: VINDESINE
     Indication: DIFFUSE LARGE B-CELL LYMPHOMA
     Route: 042
     Dates: start: 20110327, end: 20110620
  3. PREDNISONE. [Suspect]
     Active Substance: PREDNISONE
     Indication: DIFFUSE LARGE B-CELL LYMPHOMA
     Dosage: GIVEN 7 DAYS EVERY 3 WEEKS.
     Route: 048
     Dates: start: 20110325, end: 20110624
  4. EPIRUBICIN [Concomitant]
     Active Substance: EPIRUBICIN
     Indication: DIFFUSE LARGE B-CELL LYMPHOMA
     Route: 042
     Dates: start: 20110328, end: 20110621
  5. CYCLOPHOSPHAMIDE. [Suspect]
     Active Substance: CYCLOPHOSPHAMIDE
     Indication: DIFFUSE LARGE B-CELL LYMPHOMA
     Route: 042
     Dates: start: 20110327, end: 20110620

REACTIONS (3)
  - Cerebral infarction [Unknown]
  - Acute left ventricular failure [Unknown]
  - Lung infection [Unknown]

NARRATIVE: CASE EVENT DATE: 20110608
